FAERS Safety Report 10224293 (Version 2)
Quarter: 2014Q2

REPORT INFORMATION
  Report Type: Report from Study
  Country: RU (occurrence: RU)
  Receive Date: 20140609
  Receipt Date: 20140624
  Transmission Date: 20141212
  Serious: Yes (Other)
  Sender: FDA-Public Use
  Company Number: RU-SA-2014SA070530

PATIENT
  Sex: Female
  Weight: 69 kg

DRUGS (5)
  1. PLAVIX [Suspect]
     Indication: THROMBOSIS PROPHYLAXIS
     Route: 048
     Dates: start: 201310, end: 201405
  2. CONCOR [Concomitant]
     Dosage: STRENGTH: 5 MG
     Route: 048
     Dates: start: 201310
  3. PEKTROL [Concomitant]
     Dosage: STRENGTH: 40 MG TABLET
     Route: 048
     Dates: start: 201310
  4. PREDUCTAL [Concomitant]
     Route: 048
     Dates: start: 201310
  5. PRESTARIUM [Concomitant]
     Dosage: STRENGTH: 5 MG TABLET
     Route: 048
     Dates: start: 201310

REACTIONS (3)
  - Angina pectoris [Not Recovered/Not Resolved]
  - Contusion [Recovered/Resolved]
  - Dyspnoea [Not Recovered/Not Resolved]
